FAERS Safety Report 7984633-1 (Version None)
Quarter: 2011Q4

REPORT INFORMATION
  Report Type: 
  Country: None (occurrence: None)
  Receive Date: 20111216
  Receipt Date: 20111130
  Transmission Date: 20120403
  Serious: No
  Sender: FDA-Public Use
  Company Number: US-BAYER-2011-115861

PATIENT
  Sex: Female

DRUGS (8)
  1. INSULIN [Concomitant]
  2. VERAPAMIL [Concomitant]
  3. GEMFIBROZIL [Concomitant]
  4. ASPIRIN [Suspect]
     Indication: ARTHRITIS
     Dosage: 1 DF, ONCE
     Route: 048
  5. METFORMIN HCL [Concomitant]
  6. METOPROLOL TARTRATE [Concomitant]
  7. ALEVE (CAPLET) [Suspect]
     Indication: ARTHRITIS
     Dosage: 1 DF, ONCE
  8. COMBIGAN [Concomitant]

REACTIONS (1)
  - RASH [None]
